FAERS Safety Report 14182284 (Version 2)
Quarter: 2018Q2

REPORT INFORMATION
  Report Type: Spontaneous
  Country: DE (occurrence: DE)
  Receive Date: 20171113
  Receipt Date: 20180420
  Transmission Date: 20180711
  Serious: Yes (Death)
  Sender: FDA-Public Use
  Company Number: GXKR2017DE005592

PATIENT
  Age: 27 Year
  Sex: Female
  Weight: 62 kg

DRUGS (2)
  1. LAMOTRIGINE. [Suspect]
     Active Substance: LAMOTRIGINE
     Indication: GENERALISED TONIC-CLONIC SEIZURE
     Dosage: 200 MG, (100/200 MG)
     Route: 048
     Dates: start: 2008, end: 201704
  2. LAMOTRIGINE. [Suspect]
     Active Substance: LAMOTRIGINE
     Dosage: 300 MG, (300/200 MG)
     Route: 048
     Dates: start: 201704

REACTIONS (1)
  - Death [Fatal]

NARRATIVE: CASE EVENT DATE: 20170621
